FAERS Safety Report 24282675 (Version 4)
Quarter: 2025Q1

REPORT INFORMATION
  Report Type: Spontaneous
  Country: US (occurrence: US)
  Receive Date: 20240904
  Receipt Date: 20250225
  Transmission Date: 20250409
  Serious: Yes (Death, Other)
  Sender: SANOFI AVENTIS
  Company Number: US-SANOFI-02197337

PATIENT
  Age: 91 Year
  Sex: Male
  Weight: 76.36 kg

DRUGS (14)
  1. DUPIXENT [Suspect]
     Active Substance: DUPILUMAB
     Indication: Rash
     Route: 058
     Dates: start: 20210129, end: 20210129
  2. DUPIXENT [Suspect]
     Active Substance: DUPILUMAB
     Indication: Pruritus
     Dosage: 300 MG, QOW
     Route: 058
     Dates: start: 202102
  3. DUPIXENT [Suspect]
     Active Substance: DUPILUMAB
     Indication: Dermatitis atopic
  4. DUPIXENT [Suspect]
     Active Substance: DUPILUMAB
     Indication: Eczema
  5. TORSEMIDE [Concomitant]
     Active Substance: TORSEMIDE
  6. CARVEDILOL [Concomitant]
     Active Substance: CARVEDILOL
  7. HYDROCORTISONE [Concomitant]
     Active Substance: HYDROCORTISONE
  8. DONEPEZIL HYDROCHLORIDE [Concomitant]
     Active Substance: DONEPEZIL HYDROCHLORIDE
  9. CLONAZEPAM [Concomitant]
     Active Substance: CLONAZEPAM
  10. TRIAMCINOLONE ACETONIDE [Concomitant]
     Active Substance: TRIAMCINOLONE ACETONIDE
  11. BICALUTAMIDE [Concomitant]
     Active Substance: BICALUTAMIDE
  12. TERAZOSIN HYDROCHLORIDE [Concomitant]
     Active Substance: TERAZOSIN HYDROCHLORIDE
  13. IRBESARTAN [Concomitant]
     Active Substance: IRBESARTAN
  14. PREDNISONE [Concomitant]
     Active Substance: PREDNISONE

REACTIONS (4)
  - Death [Fatal]
  - Product use in unapproved indication [Unknown]
  - Accidental exposure to product [Unknown]
  - Exposure via skin contact [Unknown]

NARRATIVE: CASE EVENT DATE: 20210129
